FAERS Safety Report 9174554 (Version 1)
Quarter: 2013Q1

REPORT INFORMATION
  Report Type: Spontaneous
  Country: FR (occurrence: None)
  Receive Date: 20130315
  Receipt Date: 20130315
  Transmission Date: 20140127
  Serious: Yes (Hospitalization)
  Sender: FDA-Public Use
  Company Number: AUR-APL-2013-02246

PATIENT
  Age: 85 Year
  Sex: Male

DRUGS (6)
  1. RAMIPRIL (RAMIPRIL) [Suspect]
     Indication: HYPERTENSION
     Route: 048
  2. TAHOR (ATORVASTATIN CALCIUM) [Suspect]
     Indication: DYSLIPIDAEMIA
     Route: 048
  3. REMINYL (GALANTAMINE) [Suspect]
     Route: 048
     Dates: start: 20130111
  4. NAFTIDROFURYL (NAFTIDROFURYL) [Suspect]
     Route: 048
  5. ASPEGIC ADULTS (ACETYLSALICYLIC ACID) [Concomitant]
  6. SERESTA (OXAZEPAM) [Concomitant]

REACTIONS (7)
  - Fall [None]
  - Disorientation [None]
  - Hypotension [None]
  - Hepatitis acute [None]
  - Hepatocellular injury [None]
  - Confusional state [None]
  - Hepatocellular injury [None]
